FAERS Safety Report 6583919-5 (Version None)
Quarter: 2010Q1

REPORT INFORMATION
  Report Type: 
  Country: None (occurrence: None)
  Receive Date: 20100213
  Receipt Date: 20100213
  Transmission Date: 20100710
  Serious: No
  Sender: FDA-Public Use
  Company Number: None

PATIENT
  Age: 82 Year
  Sex: Male
  Weight: 80.2867 kg

DRUGS (8)
  1. GLIPIZIDE [Suspect]
     Indication: TYPE 2 DIABETES MELLITUS
     Dosage: 5 MG DAILY PO
     Route: 048
     Dates: start: 20100116, end: 20100118
  2. SIMVASTATIN [Concomitant]
  3. LOVASTATIN [Concomitant]
  4. FINASTERIDE [Concomitant]
  5. METFORMIN HCL [Concomitant]
  6. COZAAR [Concomitant]
  7. LANTUS [Concomitant]
  8. ASPIRIN [Concomitant]

REACTIONS (2)
  - DYSGEUSIA [None]
  - PARAESTHESIA ORAL [None]
